FAERS Safety Report 5512598-0 (Version None)
Quarter: 2007Q4

REPORT INFORMATION
  Report Type: 
  Country: None (occurrence: None)
  Receive Date: 20071108
  Receipt Date: 20071108
  Transmission Date: 20080405
  Serious: Yes (Death)
  Sender: FDA-Public Use
  Company Number: None

PATIENT
  Age: 55 Year
  Sex: Male
  Weight: 78 kg

DRUGS (1)
  1. NOVOSEVEN [Suspect]
     Dosage: 4.8 MG TWICE 4 HRS APART IV
     Route: 042
     Dates: start: 20071030, end: 20071030

REACTIONS (5)
  - BRAIN HERNIATION [None]
  - CEREBRAL INFARCTION [None]
  - ELECTROENCEPHALOGRAM ABNORMAL [None]
  - ENCEPHALOPATHY [None]
  - LOSS OF CONSCIOUSNESS [None]
